FAERS Safety Report 10203010 (Version 3)
Quarter: 2014Q2

REPORT INFORMATION
  Report Type: Spontaneous
  Country: DE (occurrence: DE)
  Receive Date: 20140528
  Receipt Date: 20140617
  Transmission Date: 20141212
  Serious: Yes (Other)
  Sender: FDA-Public Use
  Company Number: DE-PFIZER INC-2014124588

PATIENT
  Age: 48 Year
  Sex: Male
  Weight: 66 kg

DRUGS (2)
  1. XALATAN [Suspect]
     Indication: GLAUCOMA
     Dosage: 1 DROP IN THE EVENING BOTH EYES
     Route: 047
     Dates: start: 1997
  2. AZOPT [Suspect]
     Indication: GLAUCOMA
     Dosage: 2 GTT, 2X/DAY, MORNING AND EVENING, BOTH EYES
     Route: 047
     Dates: start: 200909

REACTIONS (10)
  - Cataract [Unknown]
  - Apathy [Not Recovered/Not Resolved]
  - Muscle spasms [Not Recovered/Not Resolved]
  - Pain in extremity [Not Recovered/Not Resolved]
  - Back pain [Not Recovered/Not Resolved]
  - Arthralgia [Not Recovered/Not Resolved]
  - Restless legs syndrome [Unknown]
  - Nasal dryness [Unknown]
  - Tinnitus [Unknown]
  - Sneezing [Unknown]
